FAERS Safety Report 5242363-3 (Version None)
Quarter: 2007Q1

REPORT INFORMATION
  Report Type: 
  Country: None (occurrence: None)
  Receive Date: 20070214
  Receipt Date: 20070202
  Transmission Date: 20070707
  Serious: Yes (Hospitalization)
  Sender: FDA-Public Use
  Company Number: 2007BI002338

PATIENT
  Age: 53 Year
  Sex: Female

DRUGS (1)
  1. AVONEX [Suspect]
     Indication: MULTIPLE SCLEROSIS
     Dosage: 30 UG;QW; IM
     Route: 030
     Dates: start: 19991201

REACTIONS (7)
  - BLOOD TEST ABNORMAL [None]
  - CONDITION AGGRAVATED [None]
  - HYSTERECTOMY [None]
  - MELANOCYTIC NAEVUS [None]
  - MULTIPLE SCLEROSIS [None]
  - PAIN [None]
  - RASH [None]
